FAERS Safety Report 10262117 (Version 1)
Quarter: 2014Q2

REPORT INFORMATION
  Report Type: Spontaneous
  Country: FR (occurrence: FR)
  Receive Date: 20140626
  Receipt Date: 20140626
  Transmission Date: 20141212
  Serious: Yes (Hospitalization, Other)
  Sender: FDA-Public Use
  Company Number: FR-ASTRAZENECA-2014SE45313

PATIENT
  Age: 21420 Day
  Sex: Male
  Weight: 85 kg

DRUGS (17)
  1. INEXIUM [Suspect]
     Route: 048
  2. METHOTREXATE [Suspect]
     Indication: B-CELL LYMPHOMA
     Route: 041
     Dates: start: 20120909, end: 20120909
  3. ZELITREX [Suspect]
     Route: 048
  4. PREDNISONE [Concomitant]
  5. ETOPOSIDE [Concomitant]
  6. ZOPHREN [Concomitant]
  7. XANAX [Concomitant]
  8. MYOLASTAN [Concomitant]
  9. ACUPAN [Concomitant]
  10. IMOVANE [Concomitant]
  11. LOVENOX [Concomitant]
  12. DIFFU K [Concomitant]
  13. DUPHALAC [Concomitant]
  14. EDUCTYL [Concomitant]
  15. EMEND [Concomitant]
  16. VITAMINE B1 B6 [Concomitant]
  17. ZOLOFT [Concomitant]

REACTIONS (11)
  - Renal failure acute [Unknown]
  - Extra dose administered [Unknown]
  - Non-Hodgkin^s lymphoma [Unknown]
  - Chronic lymphocytic leukaemia [Unknown]
  - Paraplegia [Unknown]
  - VIIth nerve paralysis [Unknown]
  - General physical health deterioration [Unknown]
  - Coma [Unknown]
  - Psychomotor skills impaired [Unknown]
  - Confusional state [Unknown]
  - Myositis [Unknown]
